FAERS Safety Report 17005323 (Version 1)
Quarter: 2019Q4

REPORT INFORMATION
  Report Type: Report from Study
  Country: CA (occurrence: CA)
  Receive Date: 20191107
  Receipt Date: 20191107
  Transmission Date: 20200122
  Serious: Yes (Hospitalization, Other)
  Sender: FDA-Public Use
  Company Number: CA-TAIHO ONCOLOGY  INC-EU-2019-01981

PATIENT
  Age: 57 Year
  Sex: Female
  Weight: 65.3 kg

DRUGS (1)
  1. LONSURF [Suspect]
     Active Substance: TIPIRACIL HYDROCHLORIDE\TRIFLURIDINE
     Indication: COLORECTAL CANCER METASTATIC
     Dosage: CYCLE 1-4?CYCLE 1: PATIENT TOOK ONLY ONE DOSE AND LONSURF WAS INTERRUPTED ON 03JUN2019. LONSURF REST
     Route: 048
     Dates: start: 20190603

REACTIONS (9)
  - Somnolence [Unknown]
  - White blood cell count decreased [Unknown]
  - Recurrent cancer [Unknown]
  - General physical health deterioration [Unknown]
  - Blindness [Unknown]
  - Neutrophil count decreased [Unknown]
  - Weight decreased [Unknown]
  - Metastases to spine [Unknown]
  - Eye infection bacterial [Recovering/Resolving]

NARRATIVE: CASE EVENT DATE: 2019
